FAERS Safety Report 5213296-3 (Version None)
Quarter: 2007Q1

REPORT INFORMATION
  Report Type: 
  Country: None (occurrence: None)
  Receive Date: 20070118
  Receipt Date: 20070118
  Transmission Date: 20070707
  Serious: Yes (Hospitalization)
  Sender: FDA-Public Use
  Company Number: None

PATIENT
  Age: 48 Year
  Sex: Male

DRUGS (2)
  1. PEGASYS [Suspect]
     Indication: HEPATITIS C
     Dosage: 180 MCG WEEKLY  SQ
     Route: 058
     Dates: start: 20060801, end: 20060929
  2. LEXAPRO [Concomitant]

REACTIONS (1)
  - MULTIPLE DRUG OVERDOSE [None]
